FAERS Safety Report 25578905 (Version 2)
Quarter: 2025Q3

REPORT INFORMATION
  Report Type: Spontaneous
  Country: EU (occurrence: EU)
  Receive Date: 20250718
  Receipt Date: 20250725
  Transmission Date: 20251021
  Serious: Yes (Other)
  Sender: TAKEDA
  Company Number: EU-EVENT-003588

PATIENT
  Age: 65 Year
  Sex: Male

DRUGS (2)
  1. ICLUSIG [Suspect]
     Active Substance: PONATINIB HYDROCHLORIDE
     Indication: Chronic myeloid leukaemia
  2. ICLUSIG [Suspect]
     Active Substance: PONATINIB HYDROCHLORIDE

REACTIONS (6)
  - Pneumonitis [Recovering/Resolving]
  - Haematotoxicity [Unknown]
  - Pancytopenia [Unknown]
  - Febrile neutropenia [Unknown]
  - Pyrexia [Unknown]
  - Cough [Unknown]

NARRATIVE: CASE EVENT DATE: 20250501
